FAERS Safety Report 7399893-8 (Version None)
Quarter: 2011Q2

REPORT INFORMATION
  Report Type: 
  Country: None (occurrence: None)
  Receive Date: 20110407
  Receipt Date: 20110331
  Transmission Date: 20111010
  Serious: Yes (Hospitalization)
  Sender: FDA-Public Use
  Company Number: US-US-EMD SERONO, INC.-7051256

PATIENT
  Sex: Female
  Weight: 72 kg

DRUGS (8)
  1. REBIF [Suspect]
     Indication: MULTIPLE SCLEROSIS
     Route: 058
     Dates: start: 20080408
  2. OPIOIDS [Suspect]
  3. BENZODIAZEPINE [Suspect]
  4. HYDROCODONE [Concomitant]
     Dates: start: 20090101
  5. BUPROPION HYDROCHLORIDE [Concomitant]
     Dates: start: 20090101
  6. VITAMIN D [Concomitant]
     Dates: start: 20100101
  7. LORAZEPAM [Concomitant]
     Dates: start: 20100101
  8. METHYLPHENIDATE [Concomitant]
     Dates: start: 20100101

REACTIONS (3)
  - CONFUSIONAL STATE [None]
  - DRUG SCREEN POSITIVE [None]
  - HYPERTENSION [None]
